FAERS Safety Report 7332050-X (Version None)
Quarter: 2011Q1

REPORT INFORMATION
  Report Type: 
  Country: None (occurrence: None)
  Receive Date: 20110304
  Receipt Date: 20090914
  Transmission Date: 20110831
  Serious: No
  Sender: FDA-Public Use
  Company Number: 2008BI028397

PATIENT
  Age: 53 Year
  Sex: Female

DRUGS (2)
  1. TYSABRI [Suspect]
     Indication: MULTIPLE SCLEROSIS
     Route: 042
     Dates: start: 20080904
  2. TYSABRI [Suspect]
     Route: 042

REACTIONS (18)
  - BALANCE DISORDER [None]
  - CHILLS [None]
  - HOT FLUSH [None]
  - ASTHENIA [None]
  - DRUG INEFFECTIVE [None]
  - HEADACHE [None]
  - COUGH [None]
  - TEMPERATURE INTOLERANCE [None]
  - FEELING ABNORMAL [None]
  - INSOMNIA [None]
  - SENSATION OF HEAVINESS [None]
  - NAUSEA [None]
  - DYSPNOEA [None]
  - FATIGUE [None]
  - NIGHT SWEATS [None]
  - DRY THROAT [None]
  - MUSCLE TIGHTNESS [None]
  - SOMNOLENCE [None]
